FAERS Safety Report 7302902-5 (Version None)
Quarter: 2011Q1

REPORT INFORMATION
  Report Type: 
  Country: None (occurrence: None)
  Receive Date: 20110218
  Receipt Date: 20110210
  Transmission Date: 20110831
  Serious: Yes (Hospitalization, Other)
  Sender: FDA-Public Use
  Company Number: US-MERCK-1010USA02557

PATIENT
  Age: 50 Year
  Sex: Female

DRUGS (4)
  1. NEURONTIN [Concomitant]
     Indication: TRIGEMINAL NEURALGIA
     Route: 065
     Dates: start: 20030101
  2. FOSAMAX [Suspect]
     Indication: OSTEOPENIA
     Route: 048
     Dates: start: 20060901, end: 20090401
  3. FOSAMAX [Suspect]
     Route: 048
     Dates: start: 20080401, end: 20090101
  4. VITAMINS (UNSPECIFIED) [Concomitant]
     Route: 065

REACTIONS (12)
  - IMPAIRED HEALING [None]
  - DEVICE FAILURE [None]
  - PAIN IN EXTREMITY [None]
  - TOOTHACHE [None]
  - FEMUR FRACTURE [None]
  - GALLBLADDER DISORDER [None]
  - FALL [None]
  - GASTROOESOPHAGEAL REFLUX DISEASE [None]
  - DEPRESSION [None]
  - LOW TURNOVER OSTEOPATHY [None]
  - RIB FRACTURE [None]
  - FRACTURE NONUNION [None]
